FAERS Safety Report 7116085-8 (Version None)
Quarter: 2010Q4

REPORT INFORMATION
  Report Type: 
  Country: None (occurrence: None)
  Receive Date: 20101122
  Receipt Date: 20101116
  Transmission Date: 20110411
  Serious: Yes (Hospitalization)
  Sender: FDA-Public Use
  Company Number: FR-ROCHE-742052

PATIENT
  Age: 65 Year
  Sex: Male

DRUGS (8)
  1. ROCEPHIN [Suspect]
     Route: 042
     Dates: start: 20100806
  2. PYOSTACINE [Suspect]
     Route: 048
     Dates: start: 20100816
  3. DIGOXIN [Suspect]
     Route: 065
     Dates: start: 20100813
  4. LASILIX [Suspect]
     Route: 065
     Dates: start: 20100813
  5. KARDEGIC [Concomitant]
  6. NEXIUM [Concomitant]
  7. TAHOR [Concomitant]
  8. PERINDOPRIL ERBUMINE [Concomitant]

REACTIONS (3)
  - BLOOD BILIRUBIN INCREASED [None]
  - CHOLESTASIS [None]
  - CYTOLYTIC HEPATITIS [None]
